FAERS Safety Report 6041444-4 (Version None)
Quarter: 2009Q1

REPORT INFORMATION
  Report Type: 
  Country: None (occurrence: None)
  Receive Date: 20090116
  Receipt Date: 20081015
  Transmission Date: 20090719
  Serious: No
  Sender: FDA-Public Use
  Company Number: US-BRISTOL-MYERS SQUIBB COMPANY-14371371

PATIENT
  Age: 60 Year
  Sex: Female

DRUGS (2)
  1. ABILIFY [Suspect]
     Indication: DEPRESSION
     Dosage: DOSE INCREASED TO 5MG
  2. CELEXA [Concomitant]

REACTIONS (2)
  - DIZZINESS [None]
  - FALL [None]
